FAERS Safety Report 9548843 (Version 1)
Quarter: 2013Q3

REPORT INFORMATION
  Report Type: Spontaneous
  Country: US (occurrence: None)
  Receive Date: 20130923
  Receipt Date: 20130923
  Transmission Date: 20140515
  Serious: Yes (Hospitalization, Disabling, Other)
  Sender: FDA-Public Use
  Company Number: None

PATIENT
  Age: 42 Year
  Sex: Female

DRUGS (2)
  1. CELEBREX [Suspect]
     Indication: OSTEOARTHRITIS
     Route: 048
  2. CELEBREX [Suspect]
     Indication: FIBROMYALGIA
     Route: 048

REACTIONS (50)
  - Cough [None]
  - Rash [None]
  - Breast pain [None]
  - Breast cyst [None]
  - Dermal cyst [None]
  - Pain in jaw [None]
  - Oral pain [None]
  - Vision blurred [None]
  - Tinnitus [None]
  - Deafness [None]
  - Hypoaesthesia [None]
  - Ear pain [None]
  - Dry mouth [None]
  - Thirst [None]
  - Dyspepsia [None]
  - Dyspepsia [None]
  - Gastritis [None]
  - Intestinal haemorrhage [None]
  - Palpitations [None]
  - Oral herpes [None]
  - Blister [None]
  - Burning mouth syndrome [None]
  - Gingival bleeding [None]
  - Hypersensitivity vasculitis [None]
  - Contusion [None]
  - Haemorrhage [None]
  - Weight increased [None]
  - Abdominal distension [None]
  - Fatigue [None]
  - Nail disorder [None]
  - Skin induration [None]
  - Dysgeusia [None]
  - Stomatitis [None]
  - Back pain [None]
  - Flatulence [None]
  - Headache [None]
  - Sinus congestion [None]
  - Insomnia [None]
  - Anxiety [None]
  - Dysgeusia [None]
  - Dysuria [None]
  - Urine output decreased [None]
  - Lacrimation increased [None]
  - Ocular hyperaemia [None]
  - Eye irritation [None]
  - Dysphagia [None]
  - Pruritus [None]
  - Rash papular [None]
  - Vulvovaginal pain [None]
  - Uterine pain [None]
